FAERS Safety Report 9763342 (Version 1)
Quarter: 2013Q4

REPORT INFORMATION
  Report Type: Spontaneous
  Country: US (occurrence: US)
  Receive Date: 20131216
  Receipt Date: 20131216
  Transmission Date: 20140711
  Serious: No
  Sender: FDA-Public Use
  Company Number: US-BIOGENIDEC-2013BI104825

PATIENT
  Age: 64 Year
  Sex: Female

DRUGS (5)
  1. TECFIDERA [Suspect]
     Indication: MULTIPLE SCLEROSIS
     Route: 048
  2. NITROFURANTOIN MONOHYDRATE [Concomitant]
  3. FOLIC ACID [Concomitant]
  4. ACTIVELLA [Concomitant]
  5. CELEXA [Concomitant]

REACTIONS (1)
  - Flushing [Recovered/Resolved]
